FAERS Safety Report 11911144 (Version 2)
Quarter: 2016Q2

REPORT INFORMATION
  Report Type: Spontaneous
  Country: US (occurrence: US)
  Receive Date: 20160112
  Receipt Date: 20160525
  Transmission Date: 20160815
  Serious: Yes (Other)
  Sender: FDA-Public Use
  Company Number: US-BAYER-2016-006015

PATIENT
  Age: 49 Year
  Sex: Female

DRUGS (1)
  1. ACETYLSALICYLIC ACID (} 100 MG) [Suspect]
     Active Substance: ASPIRIN

REACTIONS (6)
  - Middle ear effusion [None]
  - Tympanic membrane perforation [None]
  - Tinnitus [None]
  - Deafness bilateral [None]
  - Aspirin-exacerbated respiratory disease [None]
  - Drug hypersensitivity [None]
